FAERS Safety Report 9877065 (Version 1)
Quarter: 2014Q1

REPORT INFORMATION
  Report Type: Spontaneous
  Country: FR (occurrence: FR)
  Receive Date: 20140206
  Receipt Date: 20140206
  Transmission Date: 20141002
  Serious: Yes (Hospitalization)
  Sender: FDA-Public Use
  Company Number: FR-BAYER-2014-013074

PATIENT
  Age: 75 Year
  Sex: Female

DRUGS (5)
  1. CIFLOX [Suspect]
     Indication: PNEUMONIA
     Dosage: UNK
     Dates: start: 20131109, end: 20131111
  2. CLOZAPINE [Concomitant]
  3. INEXIUM [Concomitant]
  4. ASPEGIC [Concomitant]
  5. VENTOLINE [Concomitant]

REACTIONS (2)
  - Confusional state [Recovered/Resolved]
  - Akathisia [Recovered/Resolved]
